FAERS Safety Report 22003767 (Version 1)
Quarter: 2023Q1

REPORT INFORMATION
  Report Type: Spontaneous
  Country: FR (occurrence: FR)
  Receive Date: 20230217
  Receipt Date: 20230217
  Transmission Date: 20230418
  Serious: Yes (Hospitalization)
  Sender: FDA-Public Use
  Company Number: None

PATIENT
  Age: 36 Year
  Sex: Male

DRUGS (5)
  1. VALIUM [Suspect]
     Active Substance: DIAZEPAM
     Indication: Product used for unknown indication
     Dosage: NON RENSEIGNEE
     Route: 065
     Dates: start: 20220401
  2. ATARAX [Suspect]
     Active Substance: HYDROXYZINE HYDROCHLORIDE
     Indication: Product used for unknown indication
     Dosage: NON RENSEIGNEE
     Route: 065
     Dates: start: 20220401
  3. COCAINE [Suspect]
     Active Substance: COCAINE
     Indication: Product used for unknown indication
     Dosage: NON RENSEIGNEE
     Route: 065
     Dates: start: 2003
  4. NICOTINE\TOBACCO LEAF [Suspect]
     Active Substance: NICOTINE\TOBACCO LEAF
     Indication: Product used for unknown indication
     Route: 055
     Dates: start: 1998
  5. ALCOHOL [Suspect]
     Active Substance: ALCOHOL
     Indication: Product used for unknown indication
     Dosage: 35U/J
     Route: 048
     Dates: start: 1998

REACTIONS (5)
  - Craniocerebral injury [Recovering/Resolving]
  - Insomnia [Recovering/Resolving]
  - Drug abuse [Not Recovered/Not Resolved]
  - Chest pain [Recovering/Resolving]
  - Fall [Recovered/Resolved with Sequelae]

NARRATIVE: CASE EVENT DATE: 19980101
